FAERS Safety Report 15278159 (Version 1)
Quarter: 2018Q3

REPORT INFORMATION
  Report Type: Spontaneous
  Country: SE (occurrence: SE)
  Receive Date: 20180814
  Receipt Date: 20180814
  Transmission Date: 20181010
  Serious: Yes (Other)
  Sender: FDA-Public Use
  Company Number: SE-PFIZER INC-2018304591

PATIENT
  Age: 43 Year
  Sex: Female

DRUGS (5)
  1. FRAGMIN [Suspect]
     Active Substance: DALTEPARIN SODIUM
     Indication: PULMONARY EMBOLISM
     Dosage: UNK UNK, 1X/DAY
     Dates: start: 20180223
  2. ELIQUIS [Suspect]
     Active Substance: APIXABAN
     Dosage: 10 MG, DAILY
     Route: 065
     Dates: start: 20180201, end: 20180220
  3. XARELTO [Suspect]
     Active Substance: RIVAROXABAN
     Indication: PULMONARY EMBOLISM
     Dosage: 20 MG, UNK
     Dates: start: 20180302, end: 20180305
  4. RITALIN [Concomitant]
     Active Substance: METHYLPHENIDATE HYDROCHLORIDE
     Dosage: UNK
     Route: 065
  5. ELIQUIS [Suspect]
     Active Substance: APIXABAN
     Indication: PULMONARY EMBOLISM
     Dosage: 20 MG, DAILY
     Route: 065
     Dates: start: 20180125, end: 20180131

REACTIONS (4)
  - Tinnitus [Recovering/Resolving]
  - Stress [Recovering/Resolving]
  - Insomnia [Not Recovered/Not Resolved]
  - Terminal insomnia [Not Recovered/Not Resolved]

NARRATIVE: CASE EVENT DATE: 20180125
